FAERS Safety Report 7638306-5 (Version None)
Quarter: 2011Q3

REPORT INFORMATION
  Report Type: 
  Country: None (occurrence: None)
  Receive Date: 20110727
  Receipt Date: 20110727
  Transmission Date: 20111222
  Serious: No
  Sender: FDA-Public Use
  Company Number: None

PATIENT
  Sex: Male
  Weight: 74.842 kg

DRUGS (2)
  1. PAXIL [Suspect]
     Indication: DEPRESSION
     Dosage: 30 MG.
     Route: 048
     Dates: start: 20070901, end: 20110716
  2. PAXIL [Suspect]
     Indication: ANXIETY
     Dosage: 30 MG.
     Route: 048
     Dates: start: 20070901, end: 20110716

REACTIONS (1)
  - TORTICOLLIS [None]
